FAERS Safety Report 12629987 (Version 2)
Quarter: 2016Q3

REPORT INFORMATION
  Report Type: Spontaneous
  Country: FR (occurrence: FR)
  Receive Date: 20160808
  Receipt Date: 20160818
  Transmission Date: 20161109
  Serious: Yes (Hospitalization)
  Sender: FDA-Public Use
  Company Number: FR-PFIZER INC-2016361930

PATIENT
  Age: 28 Year
  Sex: Female

DRUGS (27)
  1. ATACAND [Concomitant]
     Active Substance: CANDESARTAN CILEXETIL
     Dosage: 8 MG, DAILY
  2. CORGARD [Concomitant]
     Active Substance: NADOLOL
     Dosage: 40 MG, DAILY
  3. CORDARONE [Concomitant]
     Active Substance: AMIODARONE HYDROCHLORIDE
     Dosage: 200 MG, DAILY
     Route: 048
  4. SOLU-MEDROL [Concomitant]
     Active Substance: METHYLPREDNISOLONE SODIUM SUCCINATE
     Dosage: UNK
     Dates: start: 20160622
  5. HEPARIN [Concomitant]
     Active Substance: HEPARIN SODIUM
     Dosage: UNK
     Dates: start: 20160622
  6. DEBRIDAT /00465202/ [Concomitant]
     Active Substance: TRIMEBUTINE
     Dosage: UNK
     Dates: start: 20160627
  7. LASILIX /00032601/ [Concomitant]
     Active Substance: FUROSEMIDE
     Dosage: 375 MG, DAILY
     Route: 048
     Dates: start: 20160613
  8. LASILIX /00032601/ [Concomitant]
     Active Substance: FUROSEMIDE
     Dosage: 80 MG, 2X/DAY
     Route: 048
     Dates: start: 20160622
  9. DOBUTAMINE [Concomitant]
     Active Substance: DOBUTAMINE\DOBUTAMINE HYDROCHLORIDE
     Dosage: UNK
     Dates: start: 20160622
  10. VASTEN /00880402/ [Concomitant]
     Active Substance: PRAVASTATIN SODIUM
     Dosage: UNK
     Dates: start: 20160623
  11. CELLCEPT [Concomitant]
     Active Substance: MYCOPHENOLATE MOFETIL\MYCOPHENOLATE MOFETIL HYDROCHLORIDE
     Indication: PROPHYLAXIS AGAINST TRANSPLANT REJECTION
     Dosage: UNK
     Route: 048
     Dates: start: 20160622
  12. ISUPREL [Concomitant]
     Active Substance: ISOPROTERENOL HYDROCHLORIDE
     Dosage: UNK
     Dates: start: 20160622, end: 20160629
  13. SUFENTA [Concomitant]
     Active Substance: SUFENTANIL CITRATE
     Dosage: UNK
     Dates: start: 20160622
  14. HYPNOVEL /00634103/ [Concomitant]
     Active Substance: MIDAZOLAM\MIDAZOLAM HYDROCHLORIDE
     Dosage: UNK
     Dates: start: 20160622
  15. TAZOCILLINE [Suspect]
     Active Substance: PIPERACILLIN SODIUM\TAZOBACTAM SODIUM
     Dosage: UNK
     Route: 042
     Dates: start: 20160627, end: 20160703
  16. PARACETAMOL [Concomitant]
     Active Substance: ACETAMINOPHEN
     Dosage: UNK
     Dates: start: 20160622
  17. FUNGIZONE [Concomitant]
     Active Substance: AMPHOTERICIN B
     Dosage: UNK
     Route: 048
     Dates: start: 20160624
  18. AUGMENTIN [Concomitant]
     Active Substance: AMOXICILLIN\CLAVULANATE POTASSIUM
     Dosage: UNK
     Dates: start: 20160626, end: 20160627
  19. ZOPHREN /00955302/ [Concomitant]
     Active Substance: ONDANSETRON
     Dosage: UNK
     Dates: start: 20160627
  20. EUPANTOL [Suspect]
     Active Substance: PANTOPRAZOLE SODIUM
     Dosage: UNK
     Dates: start: 20160622, end: 20160706
  21. CICLOSPORIN [Concomitant]
     Active Substance: CYCLOSPORINE
     Indication: PROPHYLAXIS AGAINST TRANSPLANT REJECTION
     Dosage: UNK
     Route: 048
     Dates: start: 20160624
  22. ANTILYMPHOCYTE SERUM [Concomitant]
     Active Substance: THYMOCYTE IMMUNE GLOBULIN NOS
     Dosage: UNK
     Dates: start: 20160622
  23. BACTRIM [Suspect]
     Active Substance: SULFAMETHOXAZOLE\TRIMETHOPRIM
     Dosage: UNK
     Dates: start: 20160627, end: 20160630
  24. BACTRIM [Suspect]
     Active Substance: SULFAMETHOXAZOLE\TRIMETHOPRIM
     Dosage: UNK
     Dates: start: 20160707
  25. PREVISCAN /00789001/ [Concomitant]
     Active Substance: FLUINDIONE
     Dosage: UNK
  26. NOREPINEPHRINE [Concomitant]
     Active Substance: NOREPINEPHRINE\NOREPINEPHRINE BITARTRATE
     Dosage: UNK
     Dates: start: 20160622, end: 20160625
  27. DIPRIVAN [Concomitant]
     Active Substance: PROPOFOL
     Dosage: UNK
     Dates: start: 20160622, end: 20160624

REACTIONS (1)
  - Acute kidney injury [Recovering/Resolving]

NARRATIVE: CASE EVENT DATE: 20160630
